FAERS Safety Report 17600456 (Version 2)
Quarter: 2020Q2

REPORT INFORMATION
  Report Type: Report from Study
  Country: IT (occurrence: IT)
  Receive Date: 20200330
  Receipt Date: 20200408
  Transmission Date: 20200713
  Serious: Yes (Hospitalization)
  Sender: FDA-Public Use
  Company Number: IT-TEVA-2020-IT-1212927

PATIENT
  Age: 79 Year
  Sex: Female
  Weight: 79 kg

DRUGS (5)
  1. PRADAXA [Suspect]
     Active Substance: DABIGATRAN ETEXILATE MESYLATE
     Indication: ATRIAL FIBRILLATION
     Dosage: 110 MG
     Route: 048
     Dates: start: 20181001, end: 20200117
  2. DIBASE 10.000 U.I./ML GOCCE ORALI, SOLUZIONE [Suspect]
     Active Substance: CHOLECALCIFEROL
  3. LOSARTAN  ACTAVIS [Suspect]
     Active Substance: LOSARTAN
     Route: 065
  4. DOXAZOSINA ALMUS 2 MG COMPRESSE [Suspect]
     Active Substance: DOXAZOSIN MESYLATE
  5. BISOPROLOLO TEVA 5 MG COMPRESSE [Suspect]
     Active Substance: BISOPROLOL FUMARATE
     Route: 065

REACTIONS (1)
  - Haematochezia [Unknown]

NARRATIVE: CASE EVENT DATE: 20191022
